FAERS Safety Report 22644668 (Version 1)
Quarter: 2023Q2

REPORT INFORMATION
  Report Type: Spontaneous
  Country: GB (occurrence: GB)
  Receive Date: 20230627
  Receipt Date: 20230627
  Transmission Date: 20230722
  Serious: Yes (Hospitalization, Disabling, Other)
  Sender: FDA-Public Use
  Company Number: None

PATIENT
  Age: 83 Year
  Sex: Female
  Weight: 53 kg

DRUGS (1)
  1. MEMANTINE [Suspect]
     Active Substance: MEMANTINE
     Indication: Dementia
     Dosage: INCORRECT DOSE -100MG BD. CORRECT DOSE -10MG TWICE A DAY ; ;
     Route: 065

REACTIONS (13)
  - Incorrect dose administered [Unknown]
  - Visual impairment [Recovered/Resolved]
  - Agitation [Recovered/Resolved]
  - Seizure [Recovered/Resolved]
  - Blindness [Recovered/Resolved]
  - Confusional state [Recovered/Resolved]
  - Overdose [Unknown]
  - Myopic chorioretinal degeneration [Unknown]
  - Clavicle fracture [Unknown]
  - Fall [Unknown]
  - Arthralgia [Unknown]
  - Injury [Unknown]
  - Condition aggravated [Unknown]

NARRATIVE: CASE EVENT DATE: 20230129
